FAERS Safety Report 11948077 (Version 2)
Quarter: 2016Q2

REPORT INFORMATION
  Report Type: Spontaneous
  Country: US (occurrence: US)
  Receive Date: 20160125
  Receipt Date: 20160604
  Transmission Date: 20160815
  Serious: No
  Sender: FDA-Public Use
  Company Number: US-ASTRAZENECA-2016SE04308

PATIENT
  Age: 22755 Day
  Sex: Male
  Weight: 97.5 kg

DRUGS (7)
  1. FARXIGA [Suspect]
     Active Substance: DAPAGLIFLOZIN PROPANEDIOL
     Indication: DIABETES MELLITUS
     Route: 048
     Dates: start: 20141222, end: 20160116
  2. LISINOPRIL. [Concomitant]
     Active Substance: LISINOPRIL
  3. FARXIGA [Suspect]
     Active Substance: DAPAGLIFLOZIN PROPANEDIOL
     Indication: DIABETES MELLITUS
     Route: 048
     Dates: end: 20160116
  4. AGGRENOX [Concomitant]
     Active Substance: ASPIRIN\DIPYRIDAMOLE
  5. HUMALOG [Concomitant]
     Active Substance: INSULIN LISPRO
  6. PROTONIX [Concomitant]
     Active Substance: PANTOPRAZOLE SODIUM
  7. METFORMIN [Concomitant]
     Active Substance: METFORMIN HYDROCHLORIDE

REACTIONS (3)
  - Blood pressure decreased [Unknown]
  - Weight decreased [Recovered/Resolved]
  - Rhinorrhoea [Unknown]

NARRATIVE: CASE EVENT DATE: 20141222
